FAERS Safety Report 15101498 (Version 1)
Quarter: 2018Q2

REPORT INFORMATION
  Report Type: Spontaneous
  Country: US (occurrence: US)
  Receive Date: 20180611
  Receipt Date: 20180611
  Transmission Date: 20180711
  Serious: Yes (Other)
  Sender: FDA-Public Use
  Company Number: None

PATIENT
  Age: 74 Year
  Sex: Male
  Weight: 58.5 kg

DRUGS (4)
  1. LISINOPRIL. [Suspect]
     Active Substance: LISINOPRIL
     Indication: HYPERTENSION
     Route: 048
     Dates: start: 20180320, end: 20180611
  2. CLOPIDOGREL [Concomitant]
     Active Substance: CLOPIDOGREL BISULFATE
     Dates: start: 20130511
  3. SIMVASTATIN 40 MG [Concomitant]
     Active Substance: SIMVASTATIN
     Dates: start: 20141222
  4. FLUTICASONE PROPIONATE 50 MCG/SPRAY [Concomitant]
     Dates: start: 20130124

REACTIONS (3)
  - Dizziness [None]
  - Blood pressure decreased [None]
  - Product substitution issue [None]

NARRATIVE: CASE EVENT DATE: 20180611
